FAERS Safety Report 9902068 (Version 1)
Quarter: 2014Q1

REPORT INFORMATION
  Report Type: Spontaneous
  Country: US (occurrence: US)
  Receive Date: 20140217
  Receipt Date: 20140217
  Transmission Date: 20141002
  Serious: Yes (Death)
  Sender: FDA-Public Use
  Company Number: PHHY2014US014653

PATIENT
  Age: 65 Year
  Sex: Female

DRUGS (5)
  1. METHOTREXATE [Suspect]
     Indication: BREAST CANCER
     Dosage: 40 MG/M2, DAYS 1 AND 8
     Route: 042
  2. 5-FLUOROURACIL [Suspect]
     Indication: BREAST CANCER
     Dosage: 600 MG/M2, DAYS 1 AND 8
     Route: 042
  3. CYCLOPHOSPHAMIDE [Suspect]
     Indication: BREAST CANCER
     Dosage: 100 MG/M2, UNK
     Route: 048
  4. PREDNISONE [Concomitant]
     Dosage: 60 MG, 1-14 DAYS
     Route: 048
  5. TAMOXIFEN [Concomitant]
     Indication: BREAST CANCER
     Dosage: 10 MG, BID
     Route: 048

REACTIONS (6)
  - Acute myeloid leukaemia [Fatal]
  - Pancytopenia [Fatal]
  - Neutropenia [Fatal]
  - Poikilocytosis [Fatal]
  - Spur cell anaemia [Fatal]
  - Marrow hyperplasia [Fatal]
